FAERS Safety Report 13163333 (Version 1)
Quarter: 2017Q1

REPORT INFORMATION
  Report Type: Spontaneous
  Country: DE (occurrence: DE)
  Receive Date: 20170130
  Receipt Date: 20170130
  Transmission Date: 20170428
  Serious: Yes (Other)
  Sender: FDA-Public Use
  Company Number: DE-JNJFOC-20160222916

PATIENT
  Sex: Female
  Weight: 70 kg

DRUGS (4)
  1. BETAMETHASONE. [Concomitant]
     Active Substance: BETAMETHASONE
     Indication: MATERNAL THERAPY TO ENHANCE FOETAL LUNG MATURITY
     Dosage: 3 TRIMESTER??27.3-27.3 GESTATIONAL WEEK
     Route: 030
     Dates: start: 20160420, end: 20160420
  2. XEPLION [Suspect]
     Active Substance: PALIPERIDONE PALMITATE
     Indication: SCHIZOPHRENIA
     Route: 030
  3. FOLSAEURE [Concomitant]
     Active Substance: FOLIC ACID
     Indication: VITAMIN SUPPLEMENTATION
     Dosage: 2 TRIMESTER??22.2- 22.2 GESTATIONAL WEEK
     Route: 048
     Dates: start: 201601
  4. XEPLION [Suspect]
     Active Substance: PALIPERIDONE PALMITATE
     Indication: SCHIZOPHRENIA
     Dosage: 1 TRIMESTER??0-34.5 GESTATIONAL WEEK
     Route: 030

REACTIONS (4)
  - Placental insufficiency [Unknown]
  - Oligohydramnios [Unknown]
  - Exposure during pregnancy [Recovered/Resolved]
  - Premature delivery [Unknown]
